FAERS Safety Report 23069643 (Version 1)
Quarter: 2023Q4

REPORT INFORMATION
  Report Type: Spontaneous
  Country: US (occurrence: US)
  Receive Date: 20231016
  Receipt Date: 20231016
  Transmission Date: 20240110
  Serious: Yes (Life-Threatening, Hospitalization, Other)
  Sender: FDA-Public Use
  Company Number: US-LUPIN PHARMACEUTICALS INC.-2023-08781

PATIENT
  Age: 35 Year
  Sex: Female

DRUGS (1)
  1. BUPROPION [Suspect]
     Active Substance: BUPROPION
     Indication: Depression
     Dosage: 30 DOSAGE FORM (EXTENDED RELEASE TABLETS)
     Route: 048

REACTIONS (7)
  - Seizure [Recovered/Resolved]
  - Ventricular tachycardia [Recovered/Resolved]
  - Cardiogenic shock [Recovered/Resolved]
  - Unresponsive to stimuli [Recovered/Resolved]
  - Pupil fixed [Recovered/Resolved]
  - Brain stem syndrome [Recovered/Resolved]
  - Intentional overdose [Unknown]
